FAERS Safety Report 7485152-1 (Version None)
Quarter: 2011Q2

REPORT INFORMATION
  Report Type: 
  Country: None (occurrence: None)
  Receive Date: 20110517
  Receipt Date: 20101130
  Transmission Date: 20111010
  Serious: Yes (Hospitalization, Other)
  Sender: FDA-Public Use
  Company Number: US-BAYER-201030907NA

PATIENT
  Age: 40 Year
  Sex: Female
  Weight: 59.864 kg

DRUGS (12)
  1. YAZ [Suspect]
     Indication: MENOPAUSE
  2. XANAX [Concomitant]
     Indication: ANXIETY
     Dosage: 0.25 MG, PRN
     Route: 048
  3. ALDACTONE [Concomitant]
     Dosage: 50 MG, QD
     Route: 048
  4. YASMIN [Suspect]
     Indication: ACNE
     Dosage: UNK
     Route: 048
     Dates: start: 20030101, end: 20030901
  5. ZOLOFT [Concomitant]
     Indication: DEPRESSION
     Dosage: 40 UNK, UNK
     Route: 048
  6. SOMA [Concomitant]
     Dosage: 1 UNK, PRN
     Route: 048
  7. YASMIN [Suspect]
     Indication: MENOPAUSE
  8. ALLEGRA [Concomitant]
     Dosage: 180 MG, QD
     Route: 048
  9. NAPROXEN [Concomitant]
  10. YAZ [Suspect]
     Indication: ACNE
     Dosage: UNK
     Route: 048
     Dates: start: 20030901, end: 20030901
  11. NEXIUM [Concomitant]
     Indication: GASTROOESOPHAGEAL REFLUX DISEASE
     Dosage: 40 MG, UNK
     Route: 048
  12. FLONASE [Concomitant]
     Dosage: 2 UNK, UNK
     Route: 055

REACTIONS (2)
  - DEEP VEIN THROMBOSIS [None]
  - PAIN IN EXTREMITY [None]
